FAERS Safety Report 4947559-3 (Version None)
Quarter: 2006Q1

REPORT INFORMATION
  Report Type: 
  Country: None (occurrence: None)
  Receive Date: 20060314
  Receipt Date: 20060303
  Transmission Date: 20060701
  Serious: Yes (Hospitalization)
  Sender: FDA-Public Use
  Company Number: 2006032790

PATIENT
  Sex: Female
  Weight: 85 kg

DRUGS (12)
  1. TIKOSYN [Suspect]
     Indication: ILL-DEFINED DISORDER
     Dosage: 500 MCG (250 MCG, 2 IN 1 D)
  2. FERROUS SULFATE TAB [Concomitant]
  3. SOLU-MEDROL [Concomitant]
  4. LEVAQUIN [Concomitant]
  5. ZETIA [Concomitant]
  6. MIRALAX [Concomitant]
  7. PROTONIX [Concomitant]
  8. LEVOTHYROXINE SODIUM [Concomitant]
  9. INSULIN [Concomitant]
  10. OXYCODONE HCL [Concomitant]
  11. ACETAMINOPHEN [Concomitant]
  12. MILK OF MAGNESIA TAB [Concomitant]

REACTIONS (3)
  - ANAEMIA [None]
  - BLOOD CREATININE INCREASED [None]
  - CREATININE RENAL CLEARANCE INCREASED [None]
